FAERS Safety Report 4310621-2 (Version None)
Quarter: 2004Q1

REPORT INFORMATION
  Report Type: 
  Country: None (occurrence: None)
  Receive Date: 20040301
  Receipt Date: 20031028
  Transmission Date: 20041129
  Serious: No
  Sender: FDA-Public Use
  Company Number: WAES 0310USA03084

PATIENT
  Age: 60 Year
  Sex: Female

DRUGS (3)
  1. ZETIA [Suspect]
     Indication: HYPERLIPIDAEMIA
     Dosage: 10 MG/DAILY/PO
     Route: 048
  2. COZAAR [Concomitant]
  3. DURAGESIC [Concomitant]

REACTIONS (2)
  - BACK PAIN [None]
  - SWELLING [None]
